FAERS Safety Report 8819822 (Version 1)
Quarter: 2012Q4

REPORT INFORMATION
  Report Type: 
  Country: GB (occurrence: GB)
  Receive Date: 20121001
  Receipt Date: 20121001
  Transmission Date: 20130627
  Serious: Yes (Hospitalization)
  Sender: FDA-Public Use
  Company Number: GB-PFIZER INC-2012238720

PATIENT
  Age: 44 Year
  Sex: Female
  Weight: 86 kg

DRUGS (7)
  1. METFORMIN [Concomitant]
     Indication: ABNORMAL WEIGHT GAIN
     Dosage: UNK
     Dates: start: 20060116
  2. GENOTROPIN [Suspect]
     Dosage: 0.3 mg, 7/wk
     Route: 058
     Dates: start: 20050110
  3. SALBUTAMOL [Concomitant]
     Indication: ASTHMA
     Dosage: UNK
     Dates: start: 19860701
  4. DOTHIEPIN [Concomitant]
     Indication: DEPRESSION
     Dosage: UNK
     Dates: start: 20030701
  5. NEOCLARITYN [Concomitant]
     Indication: ADRENAL INSUFFICIENCY
     Dosage: UNK
     Dates: start: 20030701
  6. OMEPRAZOLE [Concomitant]
     Indication: GASTRITIS
     Dosage: UNK
     Dates: start: 20040801
  7. BENDROFLUAZIDE [Concomitant]
     Indication: HYPERTENSION
     Dosage: UNK
     Dates: start: 20050601

REACTIONS (1)
  - Sciatica [Unknown]
